FAERS Safety Report 5042876-3 (Version None)
Quarter: 2006Q3

REPORT INFORMATION
  Report Type: 
  Country: None (occurrence: None)
  Receive Date: 20060705
  Receipt Date: 20060627
  Transmission Date: 20061208
  Serious: Yes (Life-Threatening, Hospitalization)
  Sender: FDA-Public Use
  Company Number: ES-GLAXOSMITHKLINE-B0429600A

PATIENT
  Age: 29 Year
  Sex: Male
  Weight: 56 kg

DRUGS (1)
  1. AUGMENTIN '125' [Suspect]
     Indication: ORAL SOFT TISSUE DISORDER
     Dosage: 1.5MG PER DAY
     Route: 048
     Dates: start: 20050115, end: 20050122

REACTIONS (3)
  - APLASTIC ANAEMIA [None]
  - BIOPSY BONE MARROW ABNORMAL [None]
  - IMMUNE SYSTEM DISORDER [None]
